FAERS Safety Report 9313983 (Version 1)
Quarter: 2013Q2

REPORT INFORMATION
  Report Type: Spontaneous
  Country: US (occurrence: None)
  Receive Date: 20130524
  Receipt Date: 20130524
  Transmission Date: 20140414
  Serious: Yes (Hospitalization)
  Sender: FDA-Public Use
  Company Number: None

PATIENT
  Age: 57 Year
  Sex: Male
  Weight: 77.38 kg

DRUGS (10)
  1. OFATUMUMAB [Suspect]
     Indication: CHRONIC LYMPHOCYTIC LEUKAEMIA
     Route: 042
     Dates: start: 20130117, end: 20130520
  2. ACYCLOVIR [Concomitant]
  3. FLUCONAZOLE [Concomitant]
  4. OLANZAPINE [Concomitant]
  5. PANTOPRAZOLE [Concomitant]
  6. SULFAMETHOXAZOLE-TRIMETHOPRIM [Concomitant]
  7. DOCUSATE SODIUM [Concomitant]
  8. FOLIC ACID [Concomitant]
  9. INSULIN [Concomitant]
  10. SIMETHICONE [Concomitant]

REACTIONS (3)
  - Chills [None]
  - Pyrexia [None]
  - Asthenia [None]
